FAERS Safety Report 9521269 (Version 1)
Quarter: 2013Q1

REPORT INFORMATION
  Report Type: Spontaneous
  Country: US (occurrence: None)
  Receive Date: 20130305
  Receipt Date: 20130305
  Transmission Date: 20140127
  Serious: Yes (Other)
  Sender: FDA-Public Use
  Company Number: 163-21880-11111198

PATIENT
  Age: 69 Year
  Sex: Male
  Weight: 91.22 kg

DRUGS (4)
  1. REVLIMID (LENALIDOMIDE) (25 MILLIGRAM, CAPSULES) [Suspect]
     Indication: PLASMA CELL MYELOMA
     Dosage: 25 MG, 21 IN 28 D, PO
     Route: 048
     Dates: start: 20090522, end: 20091021
  2. HCTZ (HYDROCHLOROTHIAZIDE) (UNKNOWN) [Concomitant]
  3. DIOVAN (VALSARTAN) (UNKNOWN) [Concomitant]
  4. METOPROLOL (METOPROLOL) (UNKNOWN) [Concomitant]

REACTIONS (2)
  - Prostatic specific antigen increased [None]
  - Neuropathy peripheral [None]
